FAERS Safety Report 21157830 (Version 1)
Quarter: 2022Q3

REPORT INFORMATION
  Report Type: Report from Study
  Country: FR (occurrence: FR)
  Receive Date: 20220801
  Receipt Date: 20220801
  Transmission Date: 20221027
  Serious: Yes (Hospitalization)
  Sender: FDA-Public Use
  Company Number: FR-BRISTOL-MYERS SQUIBB COMPANY-2022-080625

PATIENT
  Age: 71 Year
  Sex: Male

DRUGS (4)
  1. NIVOLUMAB [Suspect]
     Active Substance: NIVOLUMAB
     Indication: Thymoma
     Route: 042
     Dates: start: 20220615, end: 20220712
  2. NIVOLUMAB [Suspect]
     Active Substance: NIVOLUMAB
     Indication: Thymic carcinoma
  3. IPILIMUMAB [Suspect]
     Active Substance: IPILIMUMAB
     Indication: Thymoma
     Route: 042
     Dates: start: 20220615, end: 20220615
  4. IPILIMUMAB [Suspect]
     Active Substance: IPILIMUMAB
     Indication: Thymic carcinoma

REACTIONS (1)
  - Troponin I increased [Not Recovered/Not Resolved]

NARRATIVE: CASE EVENT DATE: 20220723
